FAERS Safety Report 6843662-1 (Version None)
Quarter: 2010Q3

REPORT INFORMATION
  Report Type: 
  Country: None (occurrence: None)
  Receive Date: 20100715
  Receipt Date: 20100630
  Transmission Date: 20110219
  Serious: No
  Sender: FDA-Public Use
  Company Number: US-B.I. PHARMACEUTICALS,INC./RIDGEFIELD-2010-BP-06860BP

PATIENT
  Sex: Female

DRUGS (11)
  1. COMBIVENT [Suspect]
     Indication: BRONCHITIS CHRONIC
     Dosage: 18MCG/103MCG
     Route: 055
     Dates: start: 20100521
  2. COMBIVENT [Suspect]
     Indication: DYSPNOEA
  3. COMBIVENT [Suspect]
  4. PLAVIX [Concomitant]
  5. ASPIRIN [Concomitant]
  6. SIMVASTATIN [Concomitant]
  7. METOPROLOL [Concomitant]
  8. DIURETIC [Concomitant]
  9. GLIMEPIRIDE [Concomitant]
  10. VITAMIN D [Concomitant]
  11. ALPRAZOLAM [Concomitant]

REACTIONS (1)
  - DRUG INEFFECTIVE [None]
